FAERS Safety Report 4525790-9 (Version None)
Quarter: 2004Q4

REPORT INFORMATION
  Report Type: 
  Country: None (occurrence: None)
  Receive Date: 20041116
  Receipt Date: 20040915
  Transmission Date: 20050328
  Serious: Yes (Other)
  Sender: FDA-Public Use
  Company Number: S04-USA-06123-01

PATIENT
  Age: 80 Year
  Sex: Male

DRUGS (6)
  1. NAMENDA [Suspect]
     Indication: DEMENTIA ALZHEIMER'S TYPE
     Dosage: 5 MG QD PO
     Route: 048
     Dates: start: 20040910
  2. ALTACE (RAMIPRIL) [Concomitant]
  3. NITROGLYCERIN [Concomitant]
  4. METOPROLOL [Concomitant]
  5. THYROID TAB [Concomitant]
  6. PROSCAR [Concomitant]

REACTIONS (1)
  - HYPOTENSION [None]
